FAERS Safety Report 6950922-2 (Version None)
Quarter: 2010Q3

REPORT INFORMATION
  Report Type: 
  Country: None (occurrence: None)
  Receive Date: 20100828
  Receipt Date: 20100302
  Transmission Date: 20110219
  Serious: No
  Sender: FDA-Public Use
  Company Number: US-ABBOTT-10P-163-0630297-00

PATIENT
  Sex: Male
  Weight: 64.014 kg

DRUGS (8)
  1. NIASPAN [Suspect]
     Indication: BLOOD TRIGLYCERIDES INCREASED
     Dosage: AT BED TIME
     Route: 048
     Dates: start: 20100302
  2. AVAPRO [Concomitant]
     Indication: HYPERTENSION
     Route: 048
  3. OXYCODONE HCL [Concomitant]
     Indication: MUSCULOSKELETAL PAIN
     Dosage: 1-2 AT A TIME
  4. SOMA [Concomitant]
     Indication: PAIN
     Route: 048
  5. FIORICET [Concomitant]
     Indication: PAIN
     Route: 048
  6. TRICOR [Concomitant]
     Indication: BLOOD CHOLESTEROL INCREASED
  7. ZOCOR [Concomitant]
     Indication: BLOOD CHOLESTEROL INCREASED
  8. ZETIA [Concomitant]
     Indication: BLOOD CHOLESTEROL INCREASED

REACTIONS (2)
  - BLOOD PRESSURE INCREASED [None]
  - PAIN [None]
